FAERS Safety Report 19464482 (Version 2)
Quarter: 2021Q2

REPORT INFORMATION
  Report Type: Spontaneous
  Country: IT (occurrence: IT)
  Receive Date: 20210626
  Receipt Date: 20210626
  Transmission Date: 20210717
  Serious: Yes (Life-Threatening, Hospitalization, Other)
  Sender: FDA-Public Use
  Company Number: IT-EPICPHARMA-IT-2021EPCLIT00660

PATIENT
  Age: 65 Year
  Sex: Male

DRUGS (7)
  1. MORPHINE SULFATE. [Suspect]
     Active Substance: MORPHINE SULFATE
     Indication: ANGIOPLASTY
  2. TIROFIBAN [Interacting]
     Active Substance: TIROFIBAN
     Indication: VASCULAR STENT THROMBOSIS
     Route: 065
  3. TICAGRELOR. [Suspect]
     Active Substance: TICAGRELOR
     Indication: CORONARY ARTERY STENOSIS
     Route: 065
  4. TICAGRELOR. [Suspect]
     Active Substance: TICAGRELOR
     Indication: ANGIOPLASTY
  5. MORPHINE SULFATE. [Suspect]
     Active Substance: MORPHINE SULFATE
     Indication: CORONARY ARTERY STENOSIS
     Route: 065
  6. HEPARIN [Concomitant]
     Active Substance: HEPARIN SODIUM
     Indication: ANGIOPLASTY
  7. HEPARIN [Concomitant]
     Active Substance: HEPARIN SODIUM
     Indication: CORONARY ARTERY STENOSIS
     Route: 065

REACTIONS (4)
  - Vascular stent thrombosis [Recovered/Resolved]
  - Cardiac arrest [Recovered/Resolved]
  - Ventricular fibrillation [Recovered/Resolved]
  - Drug interaction [Recovered/Resolved]
